FAERS Safety Report 5163848-4 (Version None)
Quarter: 2006Q4

REPORT INFORMATION
  Report Type: 
  Country: None (occurrence: None)
  Receive Date: 20061124
  Receipt Date: 20061114
  Transmission Date: 20070319
  Serious: Yes (Death, Other)
  Sender: FDA-Public Use
  Company Number: 2006095735

PATIENT
  Age: 65 Year
  Sex: Male
  Weight: 94.8018 kg

DRUGS (15)
  1. LIPITOR [Suspect]
     Dosage: 100 MG (1 IN 1 D), ORAL
     Route: 048
  2. TENORMIN [Suspect]
     Indication: TACHYARRHYTHMIA
     Dosage: 100 MG (1 IN 1 D), ORAL
     Route: 048
  3. GLUCOTROL [Suspect]
     Indication: DIABETES MELLITUS
     Dosage: 10 MG (1 IN 1 D), ORAL
     Route: 048
  4. NIASPAN [Suspect]
     Indication: BLOOD CHOLESTEROL INCREASED
     Dosage: 1000 MG (1 IN 1 D), ORAL
     Route: 048
     Dates: start: 20060711, end: 20060711
  5. LORAZEPAM [Suspect]
     Indication: DEPRESSION
     Dosage: 2 MG (1 IN 1 D), ORAL
     Route: 048
  6. TRAZODONE HCL [Suspect]
     Indication: DEPRESSION
     Dosage: 200 MG (1 IN 1 D), ORAL
     Route: 048
  7. EFFEXOR [Concomitant]
  8. LANOXIN [Concomitant]
  9. GLUCOPHAGE [Concomitant]
  10. ACTOS [Concomitant]
  11. LANTUS [Concomitant]
  12. TRICOR [Concomitant]
  13. WELLBUTRIN [Concomitant]
  14. MULTIVITAMIN [Concomitant]
  15. RISPERDAL [Concomitant]

REACTIONS (12)
  - BLOOD GLUCOSE INCREASED [None]
  - CARDIAC ARREST [None]
  - DEPRESSED LEVEL OF CONSCIOUSNESS [None]
  - DRY SKIN [None]
  - FLUSHING [None]
  - INCORRECT DOSE ADMINISTERED [None]
  - MYOCARDIAL INFARCTION [None]
  - PALLOR [None]
  - RESPIRATORY ARREST [None]
  - SKIN DISCOLOURATION [None]
  - SKIN WARM [None]
  - TREATMENT NONCOMPLIANCE [None]
